FAERS Safety Report 9194452 (Version 1)
Quarter: 2013Q1

REPORT INFORMATION
  Report Type: Spontaneous
  Country: None (occurrence: US)
  Receive Date: 20130327
  Receipt Date: 20130327
  Transmission Date: 20140127
  Serious: No
  Sender: FDA-Public Use
  Company Number: US-ALLERGAN-1204045US

PATIENT
  Age: 56 Year
  Sex: Female

DRUGS (2)
  1. LATISSE 0.03% [Suspect]
     Indication: GROWTH OF EYELASHES
     Dosage: 2 GTT, QHS
     Route: 061
     Dates: start: 20120221
  2. SOOTH XP [Concomitant]
     Indication: PRODUCT USED FOR UNKNOWN INDICATION

REACTIONS (6)
  - Incorrect dose administered [Unknown]
  - Skin discolouration [Recovered/Resolved]
  - Erythema of eyelid [Recovering/Resolving]
  - Skin hyperpigmentation [Recovering/Resolving]
  - Eye irritation [Recovering/Resolving]
  - Eye pruritus [Recovering/Resolving]
